FAERS Safety Report 22385111 (Version 1)
Quarter: 2023Q2

REPORT INFORMATION
  Report Type: Spontaneous
  Country: US (occurrence: US)
  Receive Date: 20230530
  Receipt Date: 20230530
  Transmission Date: 20230722
  Serious: No
  Sender: FDA-Public Use
  Company Number: US-BAYER-2023A074374

PATIENT
  Age: 21 Year
  Sex: Male

DRUGS (1)
  1. KOGENATE FS [Suspect]
     Active Substance: ANTIHEMOPHILIC FACTOR, HUMAN RECOMBINANT
     Dosage: 2000 IU
     Route: 042

REACTIONS (3)
  - Head injury [None]
  - Limb injury [None]
  - Inappropriate schedule of product administration [None]

NARRATIVE: CASE EVENT DATE: 20230523
